FAERS Safety Report 5759066-9 (Version None)
Quarter: 2008Q2

REPORT INFORMATION
  Report Type: 
  Country: None (occurrence: None)
  Receive Date: 20080604
  Receipt Date: 20080522
  Transmission Date: 20081010
  Serious: Yes (Hospitalization)
  Sender: FDA-Public Use
  Company Number: US-WATSON-2008-03054

PATIENT
  Sex: Male

DRUGS (5)
  1. ANDRODERM (WATSON LABORATORIES) [Suspect]
     Indication: BLOOD TESTOSTERONE DECREASED
     Dosage: 1 PATCH, DAILY
     Route: 062
     Dates: start: 20080426, end: 20080515
  2. WELLBUTRIN [Concomitant]
     Indication: DEPRESSION
     Dosage: 1 TABLET, QAM
     Route: 048
     Dates: start: 20080421
  3. ZYRTEC [Concomitant]
     Indication: MULTIPLE ALLERGIES
     Dosage: 1 TABLET, PRN
     Route: 048
     Dates: start: 20071016
  4. LASIX [Concomitant]
     Indication: POLYURIA
     Dosage: 1 TABLET, DAILY
     Route: 048
     Dates: start: 20080526
  5. COLCHICINE [Concomitant]
     Indication: POLYURIA
     Dosage: 1 TABLET, BID
     Route: 048
     Dates: start: 20080526

REACTIONS (5)
  - ERYTHEMA NODOSUM [None]
  - JOINT SWELLING [None]
  - OEDEMA PERIPHERAL [None]
  - PARAESTHESIA [None]
  - URTICARIA [None]
